FAERS Safety Report 6608353-0 (Version None)
Quarter: 2010Q1

REPORT INFORMATION
  Report Type: 
  Country: None (occurrence: None)
  Receive Date: 20100301
  Receipt Date: 20100222
  Transmission Date: 20100710
  Serious: Yes (Other)
  Sender: FDA-Public Use
  Company Number: US-JNJFOC-20100101486

PATIENT
  Sex: Female
  Weight: 57.15 kg

DRUGS (4)
  1. REMICADE [Suspect]
     Indication: COLITIS ULCERATIVE
     Route: 042
  2. REMICADE [Suspect]
     Route: 042
  3. TYLENOL-500 [Concomitant]
     Indication: PREMEDICATION
     Route: 048
  4. TYLENOL-500 [Concomitant]
     Indication: PYREXIA
     Route: 048

REACTIONS (8)
  - ALOPECIA [None]
  - EXFOLIATIVE RASH [None]
  - OEDEMA PERIPHERAL [None]
  - ONYCHOLYSIS [None]
  - RASH ERYTHEMATOUS [None]
  - RASH MACULAR [None]
  - RASH PUSTULAR [None]
  - SKIN EXFOLIATION [None]
